FAERS Safety Report 5912942-6 (Version None)
Quarter: 2008Q4

REPORT INFORMATION
  Report Type: 
  Country: None (occurrence: None)
  Receive Date: 20081006
  Receipt Date: 20080919
  Transmission Date: 20090506
  Serious: Yes (Death)
  Sender: FDA-Public Use
  Company Number: 08-219

PATIENT
  Sex: Male

DRUGS (9)
  1. FAZACLO ODT [Suspect]
     Dosage: 200 MG QAM PO
     Route: 048
     Dates: start: 20080606, end: 20080729
  2. FAZACLO ODT [Suspect]
     Dosage: 400 MG QHS PO
     Route: 048
  3. SEROQUEL [Concomitant]
  4. LEXAPRO [Concomitant]
  5. BUSPAR [Concomitant]
  6. EXELON [Concomitant]
  7. TRAZODONE HCL [Concomitant]
  8. METFORMIN [Concomitant]
  9. COGENTON [Concomitant]

REACTIONS (1)
  - DEATH [None]
